FAERS Safety Report 12503076 (Version 1)
Quarter: 2016Q2

REPORT INFORMATION
  Report Type: Spontaneous
  Country: US (occurrence: None)
  Receive Date: 20160627
  Receipt Date: 20160627
  Transmission Date: 20160815
  Serious: Yes (Other)
  Sender: FDA-Public Use
  Company Number: None

PATIENT
  Age: 63 Year
  Sex: Female
  Weight: 78.47 kg

DRUGS (5)
  1. LEVOTHYROXINE MYLAN [Suspect]
     Active Substance: LEVOTHYROXINE
     Indication: HYPOTHYROIDISM
     Dosage: 1 PILL
     Route: 048
  2. PREVACID [Concomitant]
     Active Substance: LANSOPRAZOLE
  3. MOTRIN [Concomitant]
     Active Substance: IBUPROFEN
  4. CA W/D [Concomitant]
  5. HCTZ [Concomitant]
     Active Substance: HYDROCHLOROTHIAZIDE

REACTIONS (3)
  - Palpitations [None]
  - Product substitution issue [None]
  - Blood thyroid stimulating hormone abnormal [None]
